FAERS Safety Report 9955222 (Version 1)
Quarter: 2014Q1

REPORT INFORMATION
  Report Type: Spontaneous
  Country: US (occurrence: US)
  Receive Date: 20140304
  Receipt Date: 20140304
  Transmission Date: 20141002
  Serious: Yes (Other)
  Sender: FDA-Public Use
  Company Number: US-BAXTER-2014BAX009419

PATIENT
  Age: 51 Year
  Sex: Female
  Weight: 60 kg

DRUGS (5)
  1. SEVOFLURANE, USP [Suspect]
     Indication: MAINTENANCE OF ANAESTHESIA
     Route: 065
  2. PROPOFOL [Suspect]
     Indication: INDUCTION OF ANAESTHESIA
     Route: 065
  3. FENTANYL [Suspect]
     Indication: INDUCTION OF ANAESTHESIA
     Route: 065
  4. ROCURONIUM [Suspect]
     Indication: INDUCTION OF ANAESTHESIA
     Route: 065
  5. DIOVAN-HCT [Concomitant]
     Indication: HYPERTENSION
     Dosage: 160/12.5 MG
     Route: 048

REACTIONS (1)
  - Hypotension [Recovered/Resolved]
